FAERS Safety Report 8032468-6 (Version None)
Quarter: 2012Q1

REPORT INFORMATION
  Report Type: 
  Country: None (occurrence: None)
  Receive Date: 20120105
  Receipt Date: 20111222
  Transmission Date: 20120608
  Serious: Yes (Hospitalization)
  Sender: FDA-Public Use
  Company Number: 1000024417

PATIENT
  Age: 77 Year
  Sex: Male

DRUGS (10)
  1. CACIT VITAMINE D3 (CALCIUM CARBONATE, CHOLECALCIFEROL) [Concomitant]
  2. SEROPLEX (ESCITALOPRAM OXALATE) (TABLETS) [Concomitant]
  3. FOSAMAX [Concomitant]
  4. INEGY (EZETIMIBE, SIMVASTATIN) [Concomitant]
  5. NEBIVOLOL HCL [Suspect]
     Indication: MYOCARDIAL INFARCTION
     Dosage: 2.5 MG (2.5 MG, 1 IN 1 D), ORAL
     Route: 048
     Dates: start: 20110101
  6. COVERSYL (PERINDOPRIL ARGININE) (TABLETS) [Suspect]
     Indication: HYPERTENSION
     Dosage: 2.5 MG (2.5 MG, 1 IN 1 D), ORAL
     Route: 048
     Dates: start: 20110101
  7. ACETAMINOPHEN [Concomitant]
  8. COVERSYL (PERINDOPRIL ARGININE) (TABLETS) [Suspect]
     Indication: HYPERTENSION
     Dosage: 5 MG (5 MG, 1 IN 1 D), ORAL
     Route: 048
     Dates: start: 20100401, end: 20110906
  9. ASPIRIN [Concomitant]
  10. NEBIVOLOL HCL [Suspect]
     Indication: MYOCARDIAL INFARCTION
     Dosage: 5 MG (5 MG, 1 IN 1 D), ORAL
     Route: 048
     Dates: start: 20110401, end: 20110905

REACTIONS (10)
  - CONTUSION [None]
  - SINUS BRADYCARDIA [None]
  - BUNDLE BRANCH BLOCK LEFT [None]
  - BUNDLE BRANCH BLOCK RIGHT [None]
  - ORTHOSTATIC HYPOTENSION [None]
  - FALL [None]
  - MYOCARDIAL ISCHAEMIA [None]
  - BRADYCARDIA [None]
  - SYNCOPE [None]
  - HYPOAESTHESIA [None]
